FAERS Safety Report 9356157 (Version 3)
Quarter: 2016Q2

REPORT INFORMATION
  Report Type: Spontaneous
  Country: US (occurrence: US)
  Receive Date: 20130619
  Receipt Date: 20160418
  Transmission Date: 20160815
  Serious: Yes (Hospitalization, Other)
  Sender: FDA-Public Use
  Company Number: US-GLAXOSMITHKLINE-A1027284A

PATIENT
  Age: 48 Year
  Sex: Female

DRUGS (4)
  1. VERAMYST [Suspect]
     Active Substance: FLUTICASONE FUROATE
     Indication: PRODUCT USED FOR UNKNOWN INDICATION
     Dosage: 27.5 MCG UNK, U
     Route: 065
     Dates: start: 20120120
  2. VENTOLIN [Suspect]
     Active Substance: ALBUTEROL SULFATE
     Indication: PRODUCT USED FOR UNKNOWN INDICATION
     Dosage: 90 MCG UNK, U
     Route: 065
     Dates: start: 20081218
  3. ADVAIR HFA [Suspect]
     Active Substance: FLUTICASONE PROPIONATE\SALMETEROL XINAFOATE
     Indication: ASTHMA
     Dosage: 500/50 MCG UNK,U
     Route: 065
     Dates: start: 20081218
  4. ADVAIR HFA [Suspect]
     Active Substance: FLUTICASONE PROPIONATE\SALMETEROL XINAFOATE
     Dosage: 500/50 MCG UNK, U

REACTIONS (3)
  - Sinusitis [Unknown]
  - Ageusia [Unknown]
  - Hospitalisation [Unknown]

NARRATIVE: CASE EVENT DATE: 201603
